FAERS Safety Report 21062530 (Version 3)
Quarter: 2022Q4

REPORT INFORMATION
  Report Type: Spontaneous
  Country: JP (occurrence: JP)
  Receive Date: 20220711
  Receipt Date: 20221014
  Transmission Date: 20230113
  Serious: Yes (Death, Hospitalization, Other)
  Sender: FDA-Public Use
  Company Number: JP-KYOWAKIRIN-2022AKK010192

PATIENT
  Age: 84 Year
  Sex: Male

DRUGS (6)
  1. DARBEPOETIN ALFA [Suspect]
     Active Substance: DARBEPOETIN ALFA
     Indication: Emphysema
     Dosage: 60 MICROGRAM
     Route: 065
  2. DARBEPOETIN ALFA [Suspect]
     Active Substance: DARBEPOETIN ALFA
     Indication: Pulmonary fibrosis
     Dosage: 80 MICROGRAM
     Route: 065
  3. DARBEPOETIN ALFA [Suspect]
     Active Substance: DARBEPOETIN ALFA
     Indication: Bladder cancer
  4. VADADUSTAT [Concomitant]
     Active Substance: VADADUSTAT
     Indication: Emphysema
     Dosage: 600 MILLIGRAM, QD
     Route: 065
  5. VADADUSTAT [Concomitant]
     Active Substance: VADADUSTAT
     Indication: Pulmonary fibrosis
  6. VADADUSTAT [Concomitant]
     Active Substance: VADADUSTAT
     Indication: Bladder cancer

REACTIONS (2)
  - Death [Fatal]
  - Urinary tract infection [Unknown]
